FAERS Safety Report 5474919-7 (Version None)
Quarter: 2007Q3

REPORT INFORMATION
  Report Type: 
  Country: None (occurrence: None)
  Receive Date: 20070831
  Receipt Date: 20070622
  Transmission Date: 20080115
  Serious: No
  Sender: FDA-Public Use
  Company Number: 241089

PATIENT
  Age: 78 Year
  Sex: Male

DRUGS (8)
  1. LUCENTIS [Suspect]
     Indication: MACULAR DEGENERATION
     Dosage: 0.5 MG, 1/MONTH, INTRAVITREL
     Dates: start: 20060801
  2. ZYRTEC [Concomitant]
  3. TRAVATAN [Concomitant]
  4. VITAMIN (VITAMINS NOS) [Concomitant]
  5. DILANTIN [Concomitant]
  6. HYDROCHLOROTHIAZIDE [Concomitant]
  7. OGUVITE (ASCORBIC ACID, BETA CAROTENE, COPPER NOS, LUTEIN, VITAMIN E, [Concomitant]
  8. PEPCID [Concomitant]

REACTIONS (1)
  - ANGIOEDEMA [None]
